FAERS Safety Report 15590798 (Version 1)
Quarter: 2018Q4

REPORT INFORMATION
  Report Type: Spontaneous
  Country: US (occurrence: US)
  Receive Date: 20181101
  Receipt Date: 20181101
  Transmission Date: 20190205
  Serious: Yes (Hospitalization)
  Sender: FDA-Public Use
  Company Number: None

PATIENT
  Sex: Male

DRUGS (1)
  1. MYCOPHENOLATE, 250 MG [Suspect]
     Active Substance: MYCOPHENOLATE MOFETIL
     Indication: HYPERPARATHYROIDISM
     Route: 048
     Dates: start: 20180219

REACTIONS (1)
  - Dizziness [None]
